FAERS Safety Report 7750876-5 (Version None)
Quarter: 2011Q3

REPORT INFORMATION
  Report Type: 
  Country: None (occurrence: None)
  Receive Date: 20110912
  Receipt Date: 20110906
  Transmission Date: 20111222
  Serious: Yes (Hospitalization, Other)
  Sender: FDA-Public Use
  Company Number: TPA2011A05290

PATIENT
  Age: 67 Year
  Sex: Male
  Weight: 91.173 kg

DRUGS (15)
  1. NASONEX [Concomitant]
  2. JANUVIA [Concomitant]
  3. CYMBALTA [Concomitant]
  4. FINASERIDE (FINASTERIDE) [Concomitant]
  5. LIPITOR [Concomitant]
  6. FLOMAX [Concomitant]
  7. CENTRUM SILVER (ASCORBIC ACID, TOCOPHERYL ACETATE, RETINOL, ZINC, CALC [Concomitant]
  8. CARVEDILOL [Concomitant]
  9. TRILIPIX (FENOFIBRATE) [Concomitant]
  10. ACTOS [Suspect]
     Indication: DIABETES MELLITUS
     Dosage: 45 MG, 1 IN 1 D ; 45 MG, 0.5 TABLET, PER ORAL
     Route: 048
     Dates: start: 20090629, end: 20100920
  11. GLIMEPIRIDE [Concomitant]
  12. WELCHOL [Concomitant]
  13. ENALAPRIL MALEATE [Concomitant]
  14. ALBUTEROL [Concomitant]
  15. PROVENTIL [Concomitant]

REACTIONS (3)
  - METASTASES TO PROSTATE [None]
  - BLADDER TRANSITIONAL CELL CARCINOMA [None]
  - METASTASES TO MUSCLE [None]
